FAERS Safety Report 9812253 (Version 1)
Quarter: 2014Q1

REPORT INFORMATION
  Report Type: Spontaneous
  Country: CA (occurrence: CA)
  Receive Date: 20140113
  Receipt Date: 20140113
  Transmission Date: 20141002
  Serious: Yes (Hospitalization)
  Sender: FDA-Public Use
  Company Number: CA-ROCHE-1331598

PATIENT
  Sex: Male

DRUGS (4)
  1. RITUXAN [Suspect]
     Indication: KIDNEY TRANSPLANT REJECTION
     Route: 042
  2. CELLCEPT [Suspect]
     Indication: PRODUCT USED FOR UNKNOWN INDICATION
     Route: 065
  3. TACROLIMUS [Concomitant]
     Route: 065
  4. PREDNISOLONE [Concomitant]
     Route: 065

REACTIONS (2)
  - Renal failure acute [Unknown]
  - Off label use [Unknown]
